FAERS Safety Report 14454124 (Version 2)
Quarter: 2018Q1

REPORT INFORMATION
  Report Type: Report from Study
  Country: BG (occurrence: BG)
  Receive Date: 20180129
  Receipt Date: 20180327
  Transmission Date: 20180509
  Serious: Yes (Death)
  Sender: FDA-Public Use
  Company Number: BG-PFIZER INC-2018037733

PATIENT
  Age: 73 Year
  Sex: Male
  Weight: 95 kg

DRUGS (9)
  1. METHOTREXATE. [Concomitant]
     Active Substance: METHOTREXATE
     Indication: PSORIATIC ARTHROPATHY
     Dosage: 10 MG, WEEKLY
     Route: 048
     Dates: start: 20100101, end: 20161225
  2. PRESTARIUM /00790701/ [Concomitant]
     Active Substance: PERINDOPRIL
     Indication: HYPERTENSION
  3. FOLIC ACID. [Concomitant]
     Active Substance: FOLIC ACID
     Indication: PSORIATIC ARTHROPATHY
     Dosage: 400 UG, 2X/DAY
     Route: 048
     Dates: start: 20050101, end: 20161225
  4. PRESTARIUM /00790701/ [Concomitant]
     Active Substance: PERINDOPRIL
     Indication: MYOCARDIAL ISCHAEMIA
     Dosage: 2.5 MG, DAILY
     Route: 048
     Dates: start: 20081118
  5. CARVEDIL [Concomitant]
     Active Substance: CARVEDILOL
     Indication: HYPERTENSION
  6. PLAVIX [Concomitant]
     Active Substance: CLOPIDOGREL BISULFATE
     Indication: MYOCARDIAL ISCHAEMIA
     Dosage: 75 MG, DAILY
     Route: 048
     Dates: start: 20081118
  7. SIMVASTATIN. [Concomitant]
     Active Substance: SIMVASTATIN
     Indication: HYPERCHOLESTEROLAEMIA
     Dosage: 20 MG, DAILY
     Route: 048
     Dates: start: 20081118
  8. TOFACITINIB CITRATE [Suspect]
     Active Substance: TOFACITINIB CITRATE
     Indication: PSORIATIC ARTHROPATHY
     Dosage: 5 MG, 2X/DAY
     Route: 048
     Dates: start: 20151110, end: 20161223
  9. CARVEDIL [Concomitant]
     Active Substance: CARVEDILOL
     Indication: MYOCARDIAL ISCHAEMIA
     Dosage: 12.5 MG, DAILY
     Route: 048
     Dates: start: 20081119

REACTIONS (2)
  - Hepatic failure [Fatal]
  - Chemical poisoning [Fatal]

NARRATIVE: CASE EVENT DATE: 20170305
